FAERS Safety Report 9174191 (Version 1)
Quarter: 2013Q1

REPORT INFORMATION
  Report Type: Spontaneous
  Country: FR (occurrence: FR)
  Receive Date: 20130320
  Receipt Date: 20130320
  Transmission Date: 20140127
  Serious: Yes (Hospitalization, Other)
  Sender: FDA-Public Use
  Company Number: FR-PFIZER INC-2013088711

PATIENT
  Age: 52 Year
  Sex: Male
  Weight: 80 kg

DRUGS (3)
  1. AMLOR [Suspect]
     Indication: HYPERTENSION
     Dosage: 5 MG, 1X/DAY
     Route: 048
     Dates: start: 201302
  2. CRESTOR [Suspect]
     Indication: DYSLIPIDAEMIA
     Dosage: UNK
     Route: 048
     Dates: start: 2012, end: 20130306
  3. VALSARTAN [Concomitant]
     Dosage: UNK
     Dates: start: 2012

REACTIONS (2)
  - Hepatocellular injury [Recovering/Resolving]
  - Peripheral ischaemia [Unknown]
